FAERS Safety Report 5926773-4 (Version None)
Quarter: 2008Q4

REPORT INFORMATION
  Report Type: 
  Country: None (occurrence: None)
  Receive Date: 20081022
  Receipt Date: 20081014
  Transmission Date: 20090506
  Serious: Yes (Other)
  Sender: FDA-Public Use
  Company Number: IE-ABBOTT-08P-229-0482003-00

PATIENT
  Sex: Female

DRUGS (2)
  1. HUMIRA [Suspect]
     Indication: RHEUMATOID ARTHRITIS
     Dates: start: 20070701
  2. HUMIRA [Suspect]

REACTIONS (4)
  - HYSTERECTOMY [None]
  - IMPAIRED HEALING [None]
  - RHINITIS [None]
  - TOOTH INFECTION [None]
